FAERS Safety Report 16351571 (Version 2)
Quarter: 2019Q2

REPORT INFORMATION
  Report Type: Report from Study
  Country: CA (occurrence: CA)
  Receive Date: 20190524
  Receipt Date: 20190606
  Transmission Date: 20190711
  Serious: Yes (Other)
  Sender: FDA-Public Use
  Company Number: CA-ROCHE-2275382

PATIENT
  Age: 66 Year
  Sex: Female

DRUGS (10)
  1. RITUXAN [Suspect]
     Active Substance: RITUXIMAB
     Indication: RHEUMATOID ARTHRITIS
     Route: 042
     Dates: start: 2005
  2. RITUXAN [Suspect]
     Active Substance: RITUXIMAB
     Route: 042
     Dates: start: 20190509
  3. NORMAL SALINE [Concomitant]
     Active Substance: SODIUM CHLORIDE
  4. FOLIC ACID. [Concomitant]
     Active Substance: FOLIC ACID
  5. CORTISONE [Concomitant]
     Active Substance: CORTISONE\HYDROCORTISONE
     Route: 048
  6. METHOTREXATE. [Concomitant]
     Active Substance: METHOTREXATE
  7. REACTINE [CETIRIZINE HYDROCHLORIDE] [Concomitant]
     Active Substance: CETIRIZINE HYDROCHLORIDE
     Route: 048
  8. BENADRYL [Suspect]
     Active Substance: DIPHENHYDRAMINE HYDROCHLORIDE
     Indication: PREMEDICATION
     Route: 048
     Dates: start: 20190509, end: 20190509
  9. TYLENOL [Concomitant]
     Active Substance: ACETAMINOPHEN
  10. SOLU-MEDROL [Suspect]
     Active Substance: METHYLPREDNISOLONE SODIUM SUCCINATE
     Indication: PREMEDICATION
     Route: 042
     Dates: start: 20190509, end: 20190509

REACTIONS (8)
  - Vomiting [Unknown]
  - Infusion related reaction [Unknown]
  - Loss of consciousness [Unknown]
  - Blood pressure systolic increased [Unknown]
  - Anaphylactic shock [Recovered/Resolved]
  - Adverse drug reaction [Unknown]
  - Blood pressure systolic abnormal [Unknown]
  - Extranodal marginal zone B-cell lymphoma (MALT type) [Unknown]

NARRATIVE: CASE EVENT DATE: 2015
